FAERS Safety Report 6902404-1 (Version None)
Quarter: 2010Q3

REPORT INFORMATION
  Report Type: 
  Country: None (occurrence: None)
  Receive Date: 20100803
  Receipt Date: 20080519
  Transmission Date: 20110219
  Serious: No
  Sender: FDA-Public Use
  Company Number: US-PFIZER INC-2008043641

PATIENT
  Sex: Female
  Weight: 55.9 kg

DRUGS (1)
  1. LYRICA [Suspect]
     Route: 048
     Dates: start: 20080506

REACTIONS (3)
  - CONSTIPATION [None]
  - FEELING ABNORMAL [None]
  - SOMNOLENCE [None]
